FAERS Safety Report 15005567 (Version 1)
Quarter: 2018Q2

REPORT INFORMATION
  Report Type: Spontaneous
  Country: US (occurrence: US)
  Receive Date: 20180521
  Receipt Date: 20180521
  Transmission Date: 20180711
  Serious: Yes (Hospitalization)
  Sender: FDA-Public Use
  Company Number: None

PATIENT
  Age: 77 Year
  Sex: Female
  Weight: 92.6 kg

DRUGS (11)
  1. COREG [Concomitant]
     Active Substance: CARVEDILOL
  2. ZESTRIL [Concomitant]
     Active Substance: LISINOPRIL
  3. ASA [Concomitant]
     Active Substance: ASPIRIN
  4. PLAVIX [Concomitant]
     Active Substance: CLOPIDOGREL BISULFATE
  5. APRESOLINE HYDROCHLORIDE [Concomitant]
     Active Substance: HYDRALAZINE HYDROCHLORIDE
  6. APAP [Concomitant]
     Active Substance: ACETAMINOPHEN
  7. VITC [Concomitant]
  8. VITD3 [Concomitant]
  9. LOVENOX [Concomitant]
     Active Substance: ENOXAPARIN SODIUM
  10. OXYCODONE [Suspect]
     Active Substance: OXYCODONE
     Indication: ARTHRALGIA
     Dosage: RECENT
     Route: 048
  11. MAG OX [Concomitant]
     Active Substance: MAGNESIUM OXIDE

REACTIONS (3)
  - Mental status changes [None]
  - Encephalopathy [None]
  - Dehydration [None]

NARRATIVE: CASE EVENT DATE: 20180214
